FAERS Safety Report 10850131 (Version 2)
Quarter: 2015Q2

REPORT INFORMATION
  Report Type: Spontaneous
  Country: IT (occurrence: IT)
  Receive Date: 20150221
  Receipt Date: 20150614
  Transmission Date: 20150821
  Serious: Yes (Hospitalization)
  Sender: FDA-Public Use
  Company Number: IT-TEVA-541305ACC

PATIENT
  Age: 59 Year
  Sex: Male

DRUGS (3)
  1. CLEXANE T - 8000 UI AXA/0.8 ML SOLUZIONE INIETTABILE [Concomitant]
     Indication: PRODUCT USED FOR UNKNOWN INDICATION
  2. IBUPROFEN. [Suspect]
     Active Substance: IBUPROFEN
     Indication: PRODUCT USED FOR UNKNOWN INDICATION
     Dosage: 1 DOSAGE FORMS DAILY;
     Route: 048
     Dates: start: 20150105, end: 20150206
  3. RAMIPRIL + HYDROCHLOROTHIAZIDE [Suspect]
     Active Substance: HYDROCHLOROTHIAZIDE\RAMIPRIL
     Indication: HYPERTENSION
     Dosage: 30 MILLIGRAM DAILY;
     Route: 048
     Dates: start: 20090101, end: 20150206

REACTIONS (3)
  - Acute kidney injury [Recovering/Resolving]
  - Hyponatraemia [Recovering/Resolving]
  - Hypotension [Recovering/Resolving]

NARRATIVE: CASE EVENT DATE: 20150206
